FAERS Safety Report 4790739-0 (Version None)
Quarter: 2005Q4

REPORT INFORMATION
  Report Type: 
  Country: None (occurrence: None)
  Receive Date: 20051006
  Receipt Date: 20051003
  Transmission Date: 20060501
  Serious: Yes (Hospitalization, Other)
  Sender: FDA-Public Use
  Company Number: US-MERCK-0510USA00489

PATIENT
  Age: 81 Year
  Sex: Male
  Weight: 79 kg

DRUGS (5)
  1. CRIXIVAN [Suspect]
     Route: 048
  2. DIDANOSINE [Suspect]
     Indication: HIV INFECTION
     Route: 048
     Dates: start: 20050605, end: 20050606
  3. ASPIRIN [Concomitant]
     Route: 065
  4. RETROVIR [Concomitant]
     Route: 065
  5. FLOMAX [Concomitant]
     Route: 065

REACTIONS (4)
  - BLOOD AMYLASE INCREASED [None]
  - CHOLECYSTECTOMY [None]
  - LIPASE INCREASED [None]
  - PANCREATITIS ACUTE [None]
